FAERS Safety Report 19907224 (Version 1)
Quarter: 2021Q4

REPORT INFORMATION
  Report Type: Spontaneous
  Country: TW (occurrence: TW)
  Receive Date: 20211001
  Receipt Date: 20211001
  Transmission Date: 20220303
  Serious: Yes (Other)
  Sender: FDA-Public Use
  Company Number: TW-BRISTOL-MYERS SQUIBB COMPANY-BMS-2021-098696

PATIENT
  Age: 55 Year
  Sex: Male

DRUGS (2)
  1. NIVOLUMAB [Suspect]
     Active Substance: NIVOLUMAB
     Indication: Hepatocellular carcinoma
     Dosage: 1 MILLIGRAM/KILOGRAM, Q3WK
     Route: 065
  2. IPILIMUMAB [Suspect]
     Active Substance: IPILIMUMAB
     Indication: Hepatocellular carcinoma
     Dosage: 3 MILLIGRAM/KILOGRAM, Q3WK
     Route: 065

REACTIONS (4)
  - Rash [Unknown]
  - Laboratory test abnormal [Unknown]
  - Oropharyngeal pain [Unknown]
  - Pyrexia [Unknown]
